FAERS Safety Report 9324096 (Version 4)
Quarter: 2013Q4

REPORT INFORMATION
  Report Type: Report from Study
  Country: JP (occurrence: JP)
  Receive Date: 20130603
  Receipt Date: 20131210
  Transmission Date: 20140711
  Serious: Yes (Hospitalization)
  Sender: FDA-Public Use
  Company Number: JP-ASTELLAS-2013US005662

PATIENT
  Age: 71 Year
  Sex: Male
  Weight: 69 kg

DRUGS (6)
  1. ERLOTINIB TABLET [Suspect]
     Indication: NON-SMALL CELL LUNG CANCER
     Dosage: 150 MG, UID/QD
     Route: 048
     Dates: start: 20130425, end: 20130521
  2. PLACEBO [Suspect]
     Indication: NON-SMALL CELL LUNG CANCER
     Dosage: UNK
     Route: 042
     Dates: start: 20130425
  3. PANVITAN                           /07504101/ [Concomitant]
     Indication: PRODUCT USED FOR UNKNOWN INDICATION
     Dosage: UNK %, UNK
     Route: 065
     Dates: start: 20130415
  4. CRAVIT [Concomitant]
     Indication: CONJUNCTIVITIS
     Dosage: UNK
     Route: 065
     Dates: start: 20130416, end: 20130510
  5. FLUMETHOLON [Concomitant]
     Indication: CONJUNCTIVITIS
     Dosage: UNK
     Route: 065
     Dates: start: 20130416, end: 20130510
  6. PURSENNID                          /00571902/ [Concomitant]
     Indication: CONSTIPATION
     Dosage: UNK
     Route: 065
     Dates: start: 20130425

REACTIONS (1)
  - Herpes zoster [Recovered/Resolved]
